FAERS Safety Report 7996352-6 (Version None)
Quarter: 2011Q4

REPORT INFORMATION
  Report Type: 
  Country: None (occurrence: None)
  Receive Date: 20111220
  Receipt Date: 20111208
  Transmission Date: 20120403
  Serious: Yes (Disabling, Other)
  Sender: FDA-Public Use
  Company Number: CA-ELI_LILLY_AND_COMPANY-CA201111002398

PATIENT
  Age: 58 Year
  Sex: Female
  Weight: 71.655 kg

DRUGS (7)
  1. CYMBALTA [Suspect]
     Dosage: 60 MG, QD
     Dates: end: 20110411
  2. CRESTOR [Concomitant]
     Dosage: 10 MG, QD
     Route: 048
  3. HYDROMORPHONE HCL [Concomitant]
     Dosage: 30 MG, BID
     Route: 048
  4. HYDROMORPHONE HCL [Concomitant]
     Indication: PAIN
     Dosage: 30 MG, BID
     Route: 048
  5. DILAUDID                                /CAN/ [Concomitant]
     Indication: PAIN
     Dosage: 16 MG, UNK
  6. CYMBALTA [Suspect]
     Indication: FIBROMYALGIA
     Dosage: 60 MG, QD
     Dates: start: 20110301
  7. HYDROMORPHONE HCL [Concomitant]
     Dosage: 6 MG, UNKNOWN
     Route: 048

REACTIONS (12)
  - AMNESIA [None]
  - PAIN IN EXTREMITY [None]
  - ARTHRALGIA [None]
  - CONDITION AGGRAVATED [None]
  - MOVEMENT DISORDER [None]
  - DIZZINESS [None]
  - NAUSEA [None]
  - NEUROPATHY PERIPHERAL [None]
  - PARAESTHESIA [None]
  - GAIT DISTURBANCE [None]
  - YAWNING [None]
  - MYALGIA [None]
